FAERS Safety Report 8918858 (Version 1)
Quarter: 2012Q4

REPORT INFORMATION
  Report Type: Spontaneous
  Country: US (occurrence: None)
  Receive Date: 20121115
  Receipt Date: 20121115
  Transmission Date: 20130627
  Serious: Yes (Hospitalization)
  Sender: FDA-Public Use
  Company Number: None

PATIENT
  Age: 58 Year
  Sex: Male
  Weight: 93 kg

DRUGS (2)
  1. LISINOPRIL [Suspect]
     Indication: DIABETES MELLITUS
     Dosage: 5 MG  EVERY DAY  PO
     Route: 048
     Dates: start: 20070330, end: 20121029
  2. DOCOSANOL [Suspect]
     Dates: start: 20121029, end: 20121029

REACTIONS (1)
  - Angioedema [None]
